FAERS Safety Report 6660413-4 (Version None)
Quarter: 2010Q1

REPORT INFORMATION
  Report Type: 
  Country: None (occurrence: None)
  Receive Date: 20100331
  Receipt Date: 20100317
  Transmission Date: 20100710
  Serious: Yes (Hospitalization)
  Sender: FDA-Public Use
  Company Number: NO-RANBAXY-2010RR-32554

PATIENT
  Sex: Male

DRUGS (3)
  1. SIMVASTATIN [Suspect]
     Indication: HYPERCHOLESTEROLAEMIA
     Dates: start: 20080101, end: 20080411
  2. MAREVAN [Concomitant]
     Indication: ATRIAL FIBRILLATION
  3. TAMBOCOR [Concomitant]
     Indication: ATRIAL FIBRILLATION

REACTIONS (2)
  - MITOCHONDRIAL MYOPATHY [None]
  - PAIN IN EXTREMITY [None]
